FAERS Safety Report 6526763-7 (Version None)
Quarter: 2010Q1

REPORT INFORMATION
  Report Type: 
  Country: None (occurrence: None)
  Receive Date: 20100105
  Receipt Date: 20091231
  Transmission Date: 20100710
  Serious: Yes (Other)
  Sender: FDA-Public Use
  Company Number: US-BAYER-200944096NA

PATIENT
  Sex: Female

DRUGS (1)
  1. MIRENA [Suspect]
     Indication: DRUG USE FOR UNKNOWN INDICATION
     Dosage: CONTINUOUS
     Route: 015
     Dates: start: 20080930, end: 20090101

REACTIONS (3)
  - DEVICE EXPULSION [None]
  - PELVIC INFLAMMATORY DISEASE [None]
  - PREGNANCY WITH CONTRACEPTIVE DEVICE [None]
